FAERS Safety Report 25376527 (Version 2)
Quarter: 2025Q2

REPORT INFORMATION
  Report Type: Report from Study
  Country: US (occurrence: US)
  Receive Date: 20250530
  Receipt Date: 20250605
  Transmission Date: 20250717
  Serious: Yes (Hospitalization, Other)
  Sender: ABBVIE
  Company Number: US-ABBVIE-6302878

PATIENT
  Age: 52 Year
  Sex: Female

DRUGS (2)
  1. HUMIRA [Suspect]
     Active Substance: ADALIMUMAB
     Indication: Product used for unknown indication
     Route: 058
     Dates: start: 2002
  2. HUMIRA [Suspect]
     Active Substance: ADALIMUMAB
     Route: 058
     Dates: start: 20250501

REACTIONS (9)
  - Urinary bladder haemorrhage [Unknown]
  - Bladder mass [Unknown]
  - Mobility decreased [Unknown]
  - Arthralgia [Recovering/Resolving]
  - Road traffic accident [Recovering/Resolving]
  - Bladder cancer [Unknown]
  - Pain [Not Recovered/Not Resolved]
  - Attention deficit hyperactivity disorder [Recovering/Resolving]
  - Post-traumatic stress disorder [Recovering/Resolving]

NARRATIVE: CASE EVENT DATE: 20230101
